FAERS Safety Report 9661510 (Version 2)
Quarter: 2013Q4

REPORT INFORMATION
  Report Type: Spontaneous
  Country: BE (occurrence: BE)
  Receive Date: 20131031
  Receipt Date: 20131031
  Transmission Date: 20140711
  Serious: Yes (Other)
  Sender: FDA-Public Use
  Company Number: BE-UCBSA-063927

PATIENT
  Age: 31 Year
  Sex: Female
  Weight: 60 kg

DRUGS (1)
  1. KEPPRA [Suspect]
     Dosage: DAILY DOSE: 2000 MG

REACTIONS (2)
  - Caesarean section [Unknown]
  - Pregnancy [Recovered/Resolved]
